FAERS Safety Report 8824369 (Version 3)
Quarter: 2013Q1

REPORT INFORMATION
  Report Type: Spontaneous
  Country: BR (occurrence: BR)
  Receive Date: 20121004
  Receipt Date: 20130121
  Transmission Date: 20140127
  Serious: Yes (Other)
  Sender: FDA-Public Use
  Company Number: BR-JNJFOC-20120912540

PATIENT
  Age: 58 Year
  Sex: Female
  Weight: 50.9 kg

DRUGS (15)
  1. REMICADE [Suspect]
     Indication: CROHN^S DISEASE
     Route: 042
     Dates: start: 20100726
  2. REMICADE [Suspect]
     Indication: CROHN^S DISEASE
     Route: 042
     Dates: start: 20130102
  3. REMICADE [Suspect]
     Indication: CROHN^S DISEASE
     Route: 042
     Dates: start: 20120917
  4. REMICADE [Suspect]
     Indication: CROHN^S DISEASE
     Route: 042
     Dates: start: 20121112
  5. REMICADE [Suspect]
     Indication: CROHN^S DISEASE
     Route: 042
     Dates: start: 201012
  6. AZATHIOPRINE [Concomitant]
     Indication: ARTHRITIS ENTEROPATHIC
     Route: 048
  7. SULFASALAZINE [Concomitant]
     Indication: ARTHRITIS ENTEROPATHIC
     Route: 048
  8. SULFASALAZINE [Concomitant]
     Indication: ARTHRITIS ENTEROPATHIC
     Route: 048
  9. PREDNISONE [Concomitant]
     Route: 048
  10. PREDNISONE [Concomitant]
     Route: 048
  11. CALCIUM CARBONATE [Concomitant]
     Route: 048
  12. VITAMIN D3 [Concomitant]
     Route: 048
  13. GABAPENTIN [Concomitant]
     Route: 048
  14. AMITRIPTYLINE [Concomitant]
     Route: 048
  15. NYSTATIN [Concomitant]
     Route: 048

REACTIONS (9)
  - Chest discomfort [Unknown]
  - Heart rate increased [Unknown]
  - Infusion related reaction [Unknown]
  - Tremor [Unknown]
  - Back pain [Unknown]
  - Blood pressure fluctuation [Unknown]
  - Chills [Unknown]
  - Neck pain [Recovered/Resolved]
  - Vital functions abnormal [Unknown]
